FAERS Safety Report 15082912 (Version 1)
Quarter: 2018Q2

REPORT INFORMATION
  Report Type: Spontaneous
  Country: US (occurrence: US)
  Receive Date: 20180628
  Receipt Date: 20180628
  Transmission Date: 20180711
  Serious: Yes (Hospitalization, Other)
  Sender: FDA-Public Use
  Company Number: US-JNJFOC-20180632222

PATIENT
  Age: 43 Year
  Sex: Male

DRUGS (1)
  1. INVOKANA [Suspect]
     Active Substance: CANAGLIFLOZIN
     Indication: DIABETES MELLITUS INADEQUATE CONTROL
     Route: 048
     Dates: start: 20150626, end: 20180131

REACTIONS (8)
  - Staphylococcal infection [Unknown]
  - Acute kidney injury [Unknown]
  - Foot amputation [Unknown]
  - Diabetic ulcer [Unknown]
  - Osteomyelitis [Unknown]
  - Diabetic foot infection [Unknown]
  - Cellulitis [Unknown]
  - Gas gangrene [Unknown]

NARRATIVE: CASE EVENT DATE: 20151103
